FAERS Safety Report 6868816-X (Version None)
Quarter: 2010Q3

REPORT INFORMATION
  Report Type: 
  Country: None (occurrence: None)
  Receive Date: 20100722
  Receipt Date: 20080922
  Transmission Date: 20110219
  Serious: Yes (Other)
  Sender: FDA-Public Use
  Company Number: US-PFIZER INC-2008045851

PATIENT
  Sex: Female
  Weight: 90.7 kg

DRUGS (8)
  1. CHANTIX [Suspect]
     Indication: SMOKING CESSATION THERAPY
     Route: 048
     Dates: start: 20080501
  2. CHANTIX [Suspect]
     Indication: NICOTINE DEPENDENCE
  3. CLONAZEPAM [Concomitant]
  4. HYDROXYZINE [Concomitant]
     Dosage: 25 MILLIGRAM FOUR TIMES A DAY AS NEEDED
  5. WELLBUTRIN XL [Concomitant]
  6. SYNTHROID [Concomitant]
     Indication: HYPOTHYROIDISM
  7. ADVAIR DISKUS 100/50 [Concomitant]
  8. RISPERDAL [Concomitant]
     Indication: BIPOLAR DISORDER

REACTIONS (1)
  - HALLUCINATION [None]
